FAERS Safety Report 9525929 (Version 1)
Quarter: 2013Q3

REPORT INFORMATION
  Report Type: Spontaneous
  Country: US (occurrence: None)
  Receive Date: 20130913
  Receipt Date: 20130913
  Transmission Date: 20140515
  Serious: Yes (Hospitalization)
  Sender: FDA-Public Use
  Company Number: None

PATIENT
  Age: 75 Year
  Sex: Female
  Weight: 75.9 kg

DRUGS (4)
  1. BEVACIZUMAB (RHUMAB VEGF) (704865) [Suspect]
  2. CARBOPLATIN [Suspect]
  3. PACLITAXEL (TAXOL) [Concomitant]
  4. DEXAMETHASONE [Concomitant]

REACTIONS (4)
  - Abdominal pain [None]
  - Aphagia [None]
  - Weight decreased [None]
  - Fatigue [None]
